FAERS Safety Report 6182973-2 (Version None)
Quarter: 2009Q2

REPORT INFORMATION
  Report Type: 
  Country: None (occurrence: None)
  Receive Date: 20090507
  Receipt Date: 20090504
  Transmission Date: 20091009
  Serious: Yes (Life-Threatening, Hospitalization)
  Sender: FDA-Public Use
  Company Number: DE-ELI_LILLY_AND_COMPANY-DE200905000863

PATIENT
  Sex: Female

DRUGS (3)
  1. GEMZAR [Suspect]
     Indication: PANCREATIC CARCINOMA
     Dosage: 1700 MG, UNK
     Route: 042
     Dates: start: 20081201, end: 20090201
  2. KEVATRIL [Concomitant]
     Dosage: 1 D/F, UNK
     Route: 042
     Dates: start: 20081201, end: 20090201
  3. DEXAMETHASONE 4MG TAB [Concomitant]
     Dosage: 4 MG, UNK
     Route: 042
     Dates: start: 20081201, end: 20090201

REACTIONS (3)
  - CAPILLARY LEAK SYNDROME [None]
  - HYPOALBUMINAEMIA [None]
  - PLEURAL EFFUSION [None]
